FAERS Safety Report 6341756-0 (Version None)
Quarter: 2009Q3

REPORT INFORMATION
  Report Type: 
  Country: None (occurrence: None)
  Receive Date: 20090904
  Receipt Date: 20090902
  Transmission Date: 20100115
  Serious: Yes (Death)
  Sender: FDA-Public Use
  Company Number: PHEH2009US10293

PATIENT
  Sex: Female

DRUGS (3)
  1. EXELON [Suspect]
  2. NAMENDA [Concomitant]
  3. ALPHA LIPOIC ACID [Concomitant]
     Dosage: 600 MG, QD

REACTIONS (2)
  - DEATH [None]
  - DRUG INEFFECTIVE [None]
